FAERS Safety Report 13803069 (Version 3)
Quarter: 2021Q4

REPORT INFORMATION
  Report Type: Spontaneous
  Country: IT (occurrence: IT)
  Receive Date: 20170728
  Receipt Date: 20211227
  Transmission Date: 20220303
  Serious: Yes (Other)
  Sender: FDA-Public Use
  Company Number: IT-MYLANLABS-2017M1050458

PATIENT
  Age: 78 Year
  Sex: Female

DRUGS (2)
  1. SEVELAMER CARBONATE [Suspect]
     Active Substance: SEVELAMER CARBONATE
     Indication: Chronic kidney disease
     Dosage: 3.2 G,QD
     Route: 065
  2. SEVELAMER CARBONATE [Suspect]
     Active Substance: SEVELAMER CARBONATE
     Indication: End stage renal disease

REACTIONS (3)
  - Diverticulitis [Unknown]
  - Colitis [Unknown]
  - Crystal deposit intestine [Not Recovered/Not Resolved]
